FAERS Safety Report 24675872 (Version 1)
Quarter: 2024Q4

REPORT INFORMATION
  Report Type: Spontaneous
  Country: US (occurrence: US)
  Receive Date: 20241128
  Receipt Date: 20241128
  Transmission Date: 20250115
  Serious: No
  Sender: MERCK
  Company Number: US-009507513-2411USA009146

PATIENT
  Sex: Male

DRUGS (2)
  1. BELSOMRA [Suspect]
     Active Substance: SUVOREXANT
     Indication: Insomnia
     Route: 048
  2. CANNABIS SATIVA SUBSP. INDICA TOP [Suspect]
     Active Substance: CANNABIS SATIVA SUBSP. INDICA TOP

REACTIONS (2)
  - Labelled drug-drug interaction medication error [Unknown]
  - No adverse event [Unknown]
